FAERS Safety Report 6342117-0 (Version None)
Quarter: 2009Q3

REPORT INFORMATION
  Report Type: 
  Country: None (occurrence: None)
  Receive Date: 20090903
  Receipt Date: 20090903
  Transmission Date: 20100115
  Serious: Yes (Other)
  Sender: FDA-Public Use
  Company Number: None

PATIENT
  Age: 72 Year
  Sex: Female
  Weight: 110.6777 kg

DRUGS (2)
  1. ABILIFY [Suspect]
     Indication: BIPOLAR DISORDER
     Dosage: 1/2 TO 1  A DAY
     Dates: start: 20090302
  2. ABILIFY [Suspect]
     Indication: DEPRESSION
     Dosage: 1/2 TO 1  A DAY
     Dates: start: 20090302

REACTIONS (3)
  - MUSCLE TIGHTNESS [None]
  - NAIL GROWTH ABNORMAL [None]
  - PAIN IN EXTREMITY [None]
